FAERS Safety Report 18531433 (Version 1)
Quarter: 2020Q4

REPORT INFORMATION
  Report Type: Report from Study
  Country: None (occurrence: CA)
  Receive Date: 20201122
  Receipt Date: 20201122
  Transmission Date: 20210114
  Serious: Yes (Hospitalization, Other)
  Sender: FDA-Public Use
  Company Number: CA-ABBVIE-19K-028-2795476-00

PATIENT
  Age: 57 Year
  Sex: Female
  Weight: 89.6 kg

DRUGS (3)
  1. HUMIRA [Suspect]
     Active Substance: ADALIMUMAB
     Indication: PSORIATIC ARTHROPATHY
     Route: 058
     Dates: start: 20100331, end: 2018
  2. HUMIRA [Suspect]
     Active Substance: ADALIMUMAB
     Route: 058
     Dates: end: 20190423
  3. HUMIRA [Suspect]
     Active Substance: ADALIMUMAB
     Route: 058
     Dates: start: 201905

REACTIONS (14)
  - Kidney infection [Recovered/Resolved]
  - Infection [Not Recovered/Not Resolved]
  - Cholecystitis acute [Unknown]
  - Enterococcal infection [Recovered/Resolved]
  - Sepsis [Recovering/Resolving]
  - Enterococcal infection [Not Recovered/Not Resolved]
  - Skin laceration [Unknown]
  - Pain [Not Recovered/Not Resolved]
  - Biliary catheter insertion [Not Recovered/Not Resolved]
  - Pathogen resistance [Recovered/Resolved]
  - Escherichia infection [Recovered/Resolved]
  - Urinary tract infection [Recovered/Resolved]
  - Escherichia infection [Recovered/Resolved]
  - Cystitis [Recovered/Resolved]

NARRATIVE: CASE EVENT DATE: 2019
